FAERS Safety Report 4268732-6 (Version None)
Quarter: 2004Q1

REPORT INFORMATION
  Report Type: 
  Country: None (occurrence: None)
  Receive Date: 20040112
  Receipt Date: 20031208
  Transmission Date: 20041129
  Serious: Yes (Other)
  Sender: FDA-Public Use
  Company Number: PHEH2003US11187

PATIENT
  Age: 73 Year
  Sex: Female
  Weight: 78 kg

DRUGS (4)
  1. DIOVAN HCT [Suspect]
     Indication: HYPERTENSION
     Dosage: 80MG VAL+12.5MG HCT,QD
     Route: 048
     Dates: start: 20020501, end: 20031229
  2. DIGOXIN [Concomitant]
  3. POTASSIUM SUPPLEMENTS [Concomitant]
  4. VITAMINS NOS [Concomitant]

REACTIONS (2)
  - RETINAL DISORDER [None]
  - VISUAL DISTURBANCE [None]
